FAERS Safety Report 4892405-X (Version None)
Quarter: 2006Q1

REPORT INFORMATION
  Report Type: 
  Country: None (occurrence: None)
  Receive Date: 20060126
  Receipt Date: 20060110
  Transmission Date: 20060701
  Serious: Yes (Hospitalization)
  Sender: FDA-Public Use
  Company Number: NO-MERCK-0601NOR00015

PATIENT
  Age: 43 Year
  Sex: Female

DRUGS (3)
  1. VIOXX [Suspect]
     Indication: PERIARTHRITIS
     Route: 048
     Dates: start: 20030227, end: 20030401
  2. FUROSEMIDE [Concomitant]
     Indication: CARDIAC FAILURE
     Route: 048
     Dates: start: 20020801
  3. LISINOPRIL [Concomitant]
     Indication: HYPERTENSION
     Route: 048
     Dates: start: 20050801

REACTIONS (1)
  - CARDIAC FAILURE [None]
